FAERS Safety Report 4986422-9 (Version None)
Quarter: 2006Q2

REPORT INFORMATION
  Report Type: 
  Country: None (occurrence: None)
  Receive Date: 20060428
  Receipt Date: 20060329
  Transmission Date: 20061013
  Serious: Yes (Other)
  Sender: FDA-Public Use
  Company Number: US-BRISTOL-MYERS SQUIBB COMPANY-13330881

PATIENT
  Age: 38 Year
  Sex: Male
  Weight: 62 kg

DRUGS (7)
  1. ORENCIA [Suspect]
     Indication: RHEUMATOID ARTHRITIS
     Route: 042
     Dates: start: 20060329
  2. PREDNISONE [Concomitant]
     Dosage: DURATION OF THERAPY - MANY YEARS
  3. METHOTREXATE [Concomitant]
     Dosage: DURATION OF THERAPY - MANY YEARS
     Route: 048
  4. FOSAMAX [Concomitant]
     Route: 048
  5. CALCIUM GLUCONATE [Concomitant]
  6. PRILOSEC [Concomitant]
  7. FOLIC ACID [Concomitant]
     Dosage: DURATION OF THERAPY - MANY YEARS

REACTIONS (4)
  - BACK PAIN [None]
  - CHEST PAIN [None]
  - CONVULSION [None]
  - DYSPNOEA [None]
